FAERS Safety Report 10264330 (Version 1)
Quarter: 2014Q2

REPORT INFORMATION
  Report Type: Other
  Country: GB (occurrence: GB)
  Receive Date: 20140627
  Receipt Date: 20140627
  Transmission Date: 20141212
  Serious: Yes (Disabling)
  Sender: FDA-Public Use
  Company Number: GB-LUPIN PHARMACEUTICALS INC.-E2B_00001691

PATIENT
  Age: 68 Year
  Sex: Male
  Weight: 70.85 kg

DRUGS (3)
  1. SIMVASTATIN [Suspect]
     Indication: PRODUCT USED FOR UNKNOWN INDICATION
     Route: 065
     Dates: start: 20140121
  2. LISINOPRIL [Concomitant]
     Indication: PRODUCT USED FOR UNKNOWN INDICATION
     Route: 065
     Dates: start: 20131112, end: 20131210
  3. LISINOPRIL [Concomitant]
     Route: 065
     Dates: start: 20140107

REACTIONS (3)
  - Myalgia [Recovering/Resolving]
  - Insomnia [Recovering/Resolving]
  - Dyspepsia [Unknown]
